FAERS Safety Report 7007272-8 (Version None)
Quarter: 2010Q3

REPORT INFORMATION
  Report Type: 
  Country: None (occurrence: None)
  Receive Date: 20100922
  Receipt Date: 20100914
  Transmission Date: 20110219
  Serious: Yes (Hospitalization)
  Sender: FDA-Public Use
  Company Number: US-BAXTER-2010BH020944

PATIENT
  Age: 68 Year
  Sex: Male
  Weight: 83 kg

DRUGS (47)
  1. TISSEEL VH KIT [Suspect]
     Indication: HAEMOSTASIS
     Route: 061
     Dates: start: 20100715, end: 20100715
  2. TISSEEL VH KIT [Suspect]
     Route: 061
     Dates: start: 20100715, end: 20100715
  3. METFORMIN [Concomitant]
     Route: 048
  4. METOPROLOL [Concomitant]
     Route: 048
  5. LISINOPRIL [Concomitant]
     Route: 048
  6. ACTOS [Concomitant]
     Route: 048
  7. LANTUS [Concomitant]
     Route: 030
  8. CRESTOR [Concomitant]
     Route: 048
  9. LASIX [Concomitant]
     Route: 048
  10. ZOSYN [Concomitant]
     Route: 042
     Dates: start: 20100702, end: 20100720
  11. KAY CIEL DURA-TABS [Concomitant]
     Indication: PROPHYLAXIS
     Route: 048
  12. AQUACEL [Concomitant]
     Route: 061
     Dates: start: 20100712, end: 20100720
  13. HEPARIN [Concomitant]
     Indication: PROPHYLAXIS
     Route: 042
     Dates: start: 20100712, end: 20100715
  14. PROTAMINE SULFATE [Concomitant]
     Indication: PROPHYLAXIS
     Route: 042
     Dates: start: 20100712, end: 20100715
  15. ENALAPRIL [Concomitant]
     Route: 042
     Dates: start: 20100715, end: 20100715
  16. HYDRALAZINE HCL [Concomitant]
     Route: 042
     Dates: start: 20100715, end: 20100715
  17. MORPHINE [Concomitant]
     Indication: PROPHYLAXIS
     Route: 042
     Dates: start: 20100716, end: 20100719
  18. DIPHENHYDRAMINE HYDROCHLORIDE [Concomitant]
     Indication: PROPHYLAXIS
     Dates: start: 20100712, end: 20100805
  19. MIDAZOLAM HCL [Concomitant]
     Indication: PROPHYLAXIS
     Route: 042
     Dates: start: 20100712, end: 20100712
  20. VICODIN [Concomitant]
     Route: 048
     Dates: start: 20100702, end: 20100714
  21. MAGNESIUM OXIDE [Concomitant]
     Indication: PROPHYLAXIS
     Route: 048
     Dates: start: 20100702, end: 20100719
  22. LACTATED RINGER'S [Concomitant]
     Indication: PROPHYLAXIS
     Route: 042
     Dates: start: 20100712, end: 20100712
  23. NOVOLOG [Concomitant]
     Route: 058
     Dates: start: 20100701
  24. PEPCID [Concomitant]
     Dates: start: 20100702, end: 20100702
  25. COLACE [Concomitant]
     Dates: start: 20100713, end: 20100719
  26. DICLOXACILLIN [Concomitant]
     Dates: start: 20100813, end: 20100823
  27. ZOSYN [Concomitant]
     Dates: start: 20100805, end: 20100812
  28. HYDRALAZINE HCL [Concomitant]
     Dates: start: 20100812, end: 20100812
  29. MAGNESIUM OXIDE [Concomitant]
     Dates: start: 20100806, end: 20100813
  30. TRAVAD ENEMA SALINE SOLUTION [Concomitant]
     Dates: start: 20100809, end: 20100809
  31. VITAMIN B-12 [Concomitant]
     Dates: start: 20100708, end: 20100720
  32. POTASSIUM CHLORIDE [Concomitant]
     Dates: start: 20100708, end: 20100720
  33. SODIUM CHLORIDE [Concomitant]
     Dates: start: 20100713, end: 20100720
  34. DEXTROSE [Concomitant]
     Dates: start: 20100715, end: 20100715
  35. DIPHENHYDRAMINE HYDROCHLORIDE [Concomitant]
     Dates: start: 20100805, end: 20100805
  36. VANCOMYCIN [Concomitant]
     Dates: start: 20100805, end: 20100808
  37. SIMVASTATIN [Concomitant]
     Route: 048
     Dates: start: 20100805, end: 20100811
  38. RESTORIL [Concomitant]
     Route: 048
     Dates: start: 20100708, end: 20100720
  39. MUCOMYST [Concomitant]
     Route: 055
     Dates: start: 20100811, end: 20100813
  40. DEXTRAN 40 [Concomitant]
     Dates: start: 20100715, end: 20100715
  41. ATIVAN [Concomitant]
     Dates: start: 20100712, end: 20100712
  42. NOVOLOG [Concomitant]
     Dates: start: 20100705, end: 20100717
  43. PEPCID [Concomitant]
     Dates: start: 20100705, end: 20100717
  44. LACTATED RINGER'S [Concomitant]
     Dates: start: 20100715, end: 20100715
  45. COLACE [Concomitant]
     Dates: start: 20100805, end: 20100813
  46. NOVOLOG [Concomitant]
     Dates: start: 20100805, end: 20100813
  47. POTASSIUM [Concomitant]
     Indication: ELECTROLYTE SUBSTITUTION THERAPY
     Dates: start: 20100806, end: 20100820

REACTIONS (1)
  - WOUND INFECTION STAPHYLOCOCCAL [None]
